FAERS Safety Report 5546342-8 (Version None)
Quarter: 2007Q4

REPORT INFORMATION
  Report Type: 
  Country: None (occurrence: None)
  Receive Date: 20071206
  Receipt Date: 20071206
  Transmission Date: 20080405
  Serious: Yes (Hospitalization, Other)
  Sender: FDA-Public Use
  Company Number: None

PATIENT
  Sex: Male

DRUGS (5)
  1. REVLIMID [Suspect]
     Indication: MYELODYSPLASTIC SYNDROME
     Dosage: 10MG DAILY PO
     Route: 048
  2. FOSAMAX [Concomitant]
  3. PROCRIT [Concomitant]
  4. LEFLUNOMIDE [Concomitant]
  5. VICODIN [Concomitant]

REACTIONS (9)
  - BLOOD URINE PRESENT [None]
  - DEHYDRATION [None]
  - DIARRHOEA [None]
  - HAEMORRHAGE [None]
  - NAUSEA [None]
  - PANCYTOPENIA [None]
  - PRURITUS [None]
  - RASH [None]
  - VOMITING [None]
